FAERS Safety Report 5296097-X (Version None)
Quarter: 2007Q2

REPORT INFORMATION
  Report Type: 
  Country: None (occurrence: None)
  Receive Date: 20070413
  Receipt Date: 20070411
  Transmission Date: 20071010
  Serious: Yes (Congenital Anomaly)
  Sender: FDA-Public Use
  Company Number: 200711717EU

PATIENT

DRUGS (1)
  1. NICORETTE [Suspect]

REACTIONS (4)
  - CLEFT PALATE [None]
  - CONGENITAL FOOT MALFORMATION [None]
  - DEVELOPMENTAL DELAY [None]
  - DRUG EXPOSURE DURING PREGNANCY [None]
